FAERS Safety Report 5341616-8 (Version None)
Quarter: 2007Q2

REPORT INFORMATION
  Report Type: 
  Country: None (occurrence: None)
  Receive Date: 20070601
  Receipt Date: 20070522
  Transmission Date: 20071010
  Serious: No
  Sender: FDA-Public Use
  Company Number: JP-JNJFOC-20070503020

PATIENT
  Sex: Female
  Weight: 55 kg

DRUGS (33)
  1. REMICADE [Suspect]
     Route: 042
  2. REMICADE [Suspect]
     Route: 042
  3. REMICADE [Suspect]
     Route: 042
  4. REMICADE [Suspect]
     Route: 042
  5. REMICADE [Suspect]
     Route: 042
  6. REMICADE [Suspect]
     Route: 042
  7. REMICADE [Suspect]
     Indication: RHEUMATOID ARTHRITIS
     Route: 042
  8. RHEUMATREX [Suspect]
     Route: 048
  9. RHEUMATREX [Suspect]
     Route: 048
  10. RHEUMATREX [Suspect]
     Indication: RHEUMATOID ARTHRITIS
     Route: 048
  11. ANTIHISTAMINES [Concomitant]
  12. ANTIHISTAMINES [Concomitant]
  13. ANTIHISTAMINES [Concomitant]
  14. ANTIHISTAMINES [Concomitant]
  15. ANTIHISTAMINES [Concomitant]
  16. ANTIHISTAMINES [Concomitant]
  17. ANTIHISTAMINES [Concomitant]
     Indication: PROPHYLAXIS
  18. PREDONINE [Concomitant]
     Route: 048
  19. PREDONINE [Concomitant]
     Route: 048
  20. PREDONINE [Concomitant]
     Route: 048
  21. ADRENAL HORMONE PREPARATION [Concomitant]
     Indication: RHEUMATOID ARTHRITIS
  22. PROGRAF [Concomitant]
     Indication: RHEUMATOID ARTHRITIS
     Route: 048
  23. GASTER [Concomitant]
  24. GASTER [Concomitant]
  25. GASTER [Concomitant]
  26. GASTER [Concomitant]
  27. GASTER [Concomitant]
  28. GASTER [Concomitant]
  29. GASTER [Concomitant]
     Indication: PROPHYLAXIS
  30. AZULFIDINE EN-TABS [Concomitant]
     Indication: RHEUMATOID ARTHRITIS
     Route: 048
  31. OSTELUC [Concomitant]
     Indication: RHEUMATOID ARTHRITIS
     Route: 048
  32. FOLIAMIN [Concomitant]
     Route: 048
  33. BENET [Concomitant]
     Route: 048

REACTIONS (1)
  - GINGIVITIS [None]
